FAERS Safety Report 8554901-3 (Version None)
Quarter: 2012Q3

REPORT INFORMATION
  Report Type: 
  Country: None (occurrence: None)
  Receive Date: 20120731
  Receipt Date: 20120723
  Transmission Date: 20120928
  Serious: Yes (Hospitalization)
  Sender: FDA-Public Use
  Company Number: US-ELI_LILLY_AND_COMPANY-US201206005473

PATIENT
  Sex: Female

DRUGS (1)
  1. FORTEO [Suspect]
     Indication: OSTEOPOROSIS
     Dosage: UNK, QD
     Dates: start: 20120308, end: 20120501

REACTIONS (4)
  - UTERINE PROLAPSE REPAIR [None]
  - UTERINE PROLAPSE [None]
  - ALOPECIA [None]
  - INTENTIONAL DRUG MISUSE [None]
